FAERS Safety Report 6497374-7 (Version None)
Quarter: 2009Q4

REPORT INFORMATION
  Report Type: 
  Country: None (occurrence: None)
  Receive Date: 20091215
  Receipt Date: 20091023
  Transmission Date: 20100525
  Serious: No
  Sender: FDA-Public Use
  Company Number: A0813159A

PATIENT
  Sex: Male

DRUGS (6)
  1. AVODART [Suspect]
     Indication: BENIGN PROSTATIC HYPERPLASIA
     Dosage: .5MG PER DAY
     Route: 048
     Dates: start: 20070101
  2. METFORMIN HCL [Concomitant]
  3. AMLODIPINE [Concomitant]
  4. AVAPRO [Concomitant]
  5. COREG [Concomitant]
  6. FUROSEMIDE [Concomitant]

REACTIONS (5)
  - BREAST PAIN [None]
  - BREAST TENDERNESS [None]
  - EJACULATION DISORDER [None]
  - ERECTILE DYSFUNCTION [None]
  - PARAESTHESIA [None]
